FAERS Safety Report 17213038 (Version 1)
Quarter: 2019Q4

REPORT INFORMATION
  Report Type: Spontaneous
  Country: SE (occurrence: SE)
  Receive Date: 20191230
  Receipt Date: 20191230
  Transmission Date: 20200122
  Serious: Yes (Hospitalization)
  Sender: FDA-Public Use
  Company Number: SE-MYLANLABS-2019M1127471

PATIENT
  Sex: Female

DRUGS (1)
  1. LERGIGAN (PROMETHAZINE) [Suspect]
     Active Substance: PROMETHAZINE HYDROCHLORIDE
     Indication: PRODUCT USED FOR UNKNOWN INDICATION
     Dosage: ^22 TABLETTER CA 600 MG LERGIGAN^
     Route: 048
     Dates: start: 201906, end: 201906

REACTIONS (4)
  - Abdominal pain [Unknown]
  - Psychotic disorder [Unknown]
  - Agitation [Unknown]
  - Overdose [Unknown]

NARRATIVE: CASE EVENT DATE: 201906
